FAERS Safety Report 15156074 (Version 1)
Quarter: 2018Q3

REPORT INFORMATION
  Report Type: Spontaneous
  Country: DE (occurrence: DE)
  Receive Date: 20180717
  Receipt Date: 20180717
  Transmission Date: 20181010
  Serious: Yes (Hospitalization)
  Sender: FDA-Public Use
  Company Number: DE-PFIZER INC-2018286492

PATIENT
  Age: 56 Year
  Sex: Male
  Weight: 86 kg

DRUGS (6)
  1. PREDNISOLONE. [Concomitant]
     Active Substance: PREDNISOLONE
     Dosage: 5 MG, UNK
  2. METOPROLOL. [Concomitant]
     Active Substance: METOPROLOL
     Dosage: 190 MG, UNK
  3. AMIODARONE HCL [Suspect]
     Active Substance: AMIODARONE HYDROCHLORIDE
     Dosage: UNK
     Route: 048
  4. DABIGATRAN [Concomitant]
     Active Substance: DABIGATRAN
     Dosage: 150 MG, UNK
  5. CARBIMAZOLE [Concomitant]
     Active Substance: CARBIMAZOLE
     Dosage: 10 MG, UNK
  6. ACETYLDIGOXIN [Concomitant]
     Active Substance: .BETA.-ACETYLDIGOXIN
     Dosage: 0.2 MG, UNK

REACTIONS (2)
  - Tremor [Unknown]
  - Hyperhidrosis [Unknown]

NARRATIVE: CASE EVENT DATE: 20170831
